FAERS Safety Report 4356446-3 (Version None)
Quarter: 2004Q2

REPORT INFORMATION
  Report Type: 
  Country: None (occurrence: None)
  Receive Date: 20040512
  Receipt Date: 20040211
  Transmission Date: 20050107
  Serious: Yes (Other)
  Sender: FDA-Public Use
  Company Number: PHNU2004DE00859

PATIENT
  Age: 50 Year
  Sex: Female

DRUGS (2)
  1. SANDIMMUNE [Suspect]
     Indication: LIVER TRANSPLANT
     Dates: start: 19960101
  2. PRAVASIN [Concomitant]

REACTIONS (2)
  - PAPILLOEDEMA [None]
  - VISUAL DISTURBANCE [None]
